FAERS Safety Report 9308420 (Version 2)
Quarter: 2013Q2

REPORT INFORMATION
  Report Type: Spontaneous
  Country: LB (occurrence: LB)
  Receive Date: 20130524
  Receipt Date: 20130607
  Transmission Date: 20140414
  Serious: Yes (Hospitalization, Other)
  Sender: FDA-Public Use
  Company Number: LB-ROCHE-1228067

PATIENT
  Age: 38 Year
  Sex: Female
  Weight: 55 kg

DRUGS (6)
  1. XOLAIR [Suspect]
     Indication: HYPERSENSITIVITY
     Dosage: 2 VIALS IN EVERY 2 WEEKS
     Route: 058
     Dates: start: 20130521
  2. SERETIDE [Concomitant]
  3. SINGULAIR [Concomitant]
  4. AERIUS [Concomitant]
  5. NASONEX [Concomitant]
  6. VENTOLIN [Concomitant]

REACTIONS (7)
  - Laryngeal oedema [Unknown]
  - Laryngospasm [Unknown]
  - Paraesthesia [Unknown]
  - Ear pruritus [Unknown]
  - Cough [Unknown]
  - Bronchospasm [Unknown]
  - Diaphragmatic disorder [Unknown]
